FAERS Safety Report 7605053-5 (Version None)
Quarter: 2011Q3

REPORT INFORMATION
  Report Type: 
  Country: None (occurrence: None)
  Receive Date: 20110713
  Receipt Date: 20081105
  Transmission Date: 20111222
  Serious: Yes (Death, Other)
  Sender: FDA-Public Use
  Company Number: US-BAYER-201038644NA

PATIENT
  Age: 71 Year
  Sex: Male
  Weight: 52 kg

DRUGS (19)
  1. TRASYLOL [Suspect]
     Indication: CORONARY ARTERY BYPASS
     Dosage: 50 ML/HOUR, INFUSION
     Route: 042
     Dates: start: 20070604, end: 20070604
  2. HYDROCHLOROTHIAZIDE [Concomitant]
     Indication: BLOOD PRESSURE MANAGEMENT
     Dosage: 25 MG, QD
     Route: 048
     Dates: start: 20070214, end: 20070502
  3. PROPOFOL [Concomitant]
     Dosage: 50CC PER HOUR
     Route: 042
     Dates: start: 20070604, end: 20070604
  4. ANCEF [Concomitant]
     Dosage: 1 G, UNK
     Route: 042
     Dates: start: 20070604
  5. HEPARIN [Concomitant]
     Indication: ANTICOAGULANT THERAPY
     Dosage: VARIED
     Route: 042
     Dates: start: 20070528
  6. PAVULON [Concomitant]
     Dosage: 60 MG
     Route: 042
     Dates: start: 20070604, end: 20070604
  7. PROTAMINE SULFATE [Concomitant]
     Dosage: 300 MG
     Route: 042
     Dates: start: 20070604, end: 20070604
  8. ENALAPRIL MALEATE [Concomitant]
     Indication: BLOOD PRESSURE MANAGEMENT
     Dosage: 40 MG, QD
     Route: 048
     Dates: start: 20010831, end: 20070528
  9. DIGOXIN [Concomitant]
  10. FENTANYL-100 [Concomitant]
     Dosage: 200 MG, UNK
     Route: 042
     Dates: start: 20070604, end: 20070604
  11. ACETYLSALICYLIC ACID SRT [Concomitant]
     Indication: ANTICOAGULANT THERAPY
     Dosage: 325 MG, QD
     Route: 048
     Dates: start: 20040414, end: 20070528
  12. TRASYLOL [Suspect]
     Indication: AORTIC VALVE REPLACEMENT
     Dosage: 200 ML, LOADING DOSE
     Route: 042
     Dates: start: 20070604, end: 20070604
  13. NORVASC [Concomitant]
     Indication: BLOOD PRESSURE MANAGEMENT
     Dosage: 5 MG, QD
     Route: 048
     Dates: start: 20070502, end: 20070528
  14. LIDOCAINE [Concomitant]
     Dosage: 50 MG, UNK
     Route: 042
     Dates: start: 20070604, end: 20070607
  15. LOPRESSOR [Concomitant]
     Dosage: 5 MG, UNK
     Route: 042
     Dates: start: 20070528, end: 20070528
  16. DOBUTAMINE HCL [Concomitant]
     Dosage: 5CC PER HOUR
     Route: 042
     Dates: start: 20070604, end: 20070604
  17. ETOMIDATE [Concomitant]
     Dosage: UNK
     Route: 042
     Dates: start: 20070604
  18. LOPRESSOR [Concomitant]
     Indication: BLOOD PRESSURE MANAGEMENT
     Dosage: 50 MG
     Route: 048
     Dates: start: 20070528, end: 20070528
  19. PROTONIX [Concomitant]

REACTIONS (11)
  - DEATH [None]
  - FEAR [None]
  - RENAL FAILURE [None]
  - STRESS [None]
  - ANXIETY [None]
  - PAIN [None]
  - RENAL INJURY [None]
  - RENAL IMPAIRMENT [None]
  - EMOTIONAL DISTRESS [None]
  - UNEVALUABLE EVENT [None]
  - INJURY [None]
